FAERS Safety Report 6883085-2 (Version None)
Quarter: 2010Q3

REPORT INFORMATION
  Report Type: 
  Country: None (occurrence: None)
  Receive Date: 20100728
  Receipt Date: 20100714
  Transmission Date: 20110219
  Serious: Yes (Hospitalization)
  Sender: FDA-Public Use
  Company Number: A-US2010-38182

PATIENT
  Age: 81 Year
  Sex: Male

DRUGS (12)
  1. TRACLEER [Suspect]
     Indication: PULMONARY ARTERIAL HYPERTENSION
     Dosage: 250 MG, ORAL
     Route: 048
     Dates: start: 20040916
  2. VENTAVIS [Suspect]
     Indication: PULMONARY ARTERIAL HYPERTENSION
     Dosage: 5 UG, 6 X DAY, RESPIRATORY
     Route: 055
     Dates: start: 20070329
  3. THIAMAZOL (THIAMAZOLE) [Concomitant]
  4. ALLOPURINOL [Concomitant]
  5. REVATIO [Concomitant]
  6. NEXIUM [Concomitant]
  7. ASPIRIN [Concomitant]
  8. TORSEMIDE [Concomitant]
  9. SPIRONOLACTONE [Concomitant]
  10. LACTULOSE [Concomitant]
  11. SPIRIVA [Concomitant]
  12. VIANI (FLUTICASONE PROPIONATE, SALMETEROL XINAFOATE) [Concomitant]

REACTIONS (11)
  - ANAL HAEMORRHAGE [None]
  - ANGIODYSPLASIA [None]
  - BUNDLE BRANCH BLOCK RIGHT [None]
  - CARDIOPULMONARY FAILURE [None]
  - DYSPNOEA [None]
  - GASTROINTESTINAL HAEMORRHAGE [None]
  - HAEMOGLOBIN DECREASED [None]
  - HEPATIC CIRRHOSIS [None]
  - OXYGEN SATURATION DECREASED [None]
  - SPLENOMEGALY [None]
  - TACHYCARDIA [None]
